FAERS Safety Report 6354945-6 (Version None)
Quarter: 2009Q3

REPORT INFORMATION
  Report Type: 
  Country: None (occurrence: None)
  Receive Date: 20090914
  Receipt Date: 20080818
  Transmission Date: 20100115
  Serious: Yes (Life-Threatening, Disabling)
  Sender: FDA-Public Use
  Company Number: A0737215A

PATIENT
  Age: 22 Year
  Sex: Female

DRUGS (4)
  1. VENTOLIN [Suspect]
     Indication: ASTHMA
     Dosage: 2PUFF AS REQUIRED
     Route: 055
  2. SINGULAIR [Concomitant]
  3. PREDNISONE [Concomitant]
  4. NEBULIZER [Concomitant]

REACTIONS (7)
  - ASTHMA [None]
  - DRUG INEFFECTIVE [None]
  - MIGRAINE [None]
  - OXYGEN SATURATION DECREASED [None]
  - PRODUCT QUALITY ISSUE [None]
  - TACHYCARDIA [None]
  - WHEEZING [None]
